FAERS Safety Report 7996337-X (Version None)
Quarter: 2011Q4

REPORT INFORMATION
  Report Type: 
  Country: None (occurrence: None)
  Receive Date: 20111220
  Receipt Date: 20111207
  Transmission Date: 20120403
  Serious: Yes (Hospitalization, Other)
  Sender: FDA-Public Use
  Company Number: US-ELI_LILLY_AND_COMPANY-US201011007342

PATIENT
  Sex: Male

DRUGS (17)
  1. FORTEO [Suspect]
     Dosage: 20 UG, QD
  2. FINASTERIDE [Concomitant]
     Dosage: 5 MG, UNKNOWN
  3. GALANTAMINE HYDROBROMIDE [Concomitant]
     Dosage: 12 MG, BID
  4. GABAPENTIN [Concomitant]
     Dosage: 30 MG, BID
  5. VITAMIN D [Concomitant]
     Dosage: 50000 U, MONTHLY (1/M)
  6. FORTEO [Suspect]
     Indication: OSTEOPOROSIS
     Dosage: 20 UG, QD
     Route: 065
     Dates: start: 20101122
  7. MELOXICAM [Concomitant]
     Dosage: 12 ML, UNKNOWN
  8. FORTEO [Suspect]
     Dosage: 20 UG, QD
  9. CALCIUM [Concomitant]
     Dosage: 600 MG, UNK
  10. VITAMIN TAB [Concomitant]
  11. NAMENDA [Concomitant]
     Dosage: 10 MG, BID
  12. ASPIRIN [Concomitant]
  13. FORTEO [Suspect]
     Dosage: 20 UG, QD
  14. OMEPRAZOLE [Concomitant]
     Dosage: 20 MG, UNKNOWN
  15. CLONAZEPAM [Concomitant]
     Dosage: .5 MG, QD
  16. PROCRIT [Concomitant]
     Dosage: UNK
  17. OXYBUTYNIN [Concomitant]
     Dosage: 10 MG, UNKNOWN

REACTIONS (14)
  - OEDEMA PERIPHERAL [None]
  - ASTHENIA [None]
  - CARDIAC PACEMAKER INSERTION [None]
  - ABDOMINAL DISCOMFORT [None]
  - PAIN IN EXTREMITY [None]
  - DISCOMFORT [None]
  - JOINT SWELLING [None]
  - CONSTIPATION [None]
  - ARTHRALGIA [None]
  - HYPOTENSION [None]
  - CARDIOVASCULAR DISORDER [None]
  - RESTLESS LEGS SYNDROME [None]
  - PAIN [None]
  - BLISTER [None]
